FAERS Safety Report 9401272 (Version 2)
Quarter: 2013Q4

REPORT INFORMATION
  Report Type: Spontaneous
  Country: GB (occurrence: GB)
  Receive Date: 20130715
  Receipt Date: 20131203
  Transmission Date: 20140711
  Serious: Yes (Other)
  Sender: FDA-Public Use
  Company Number: GB-WATSON-2013-12399

PATIENT
  Age: 52 Year
  Sex: Female
  Weight: 180 kg

DRUGS (2)
  1. SIMVASTATIN (UNKNOWN) [Suspect]
     Indication: BLOOD CHOLESTEROL INCREASED
     Dosage: 40 MG, UNKNOWN
     Route: 048
     Dates: start: 201210, end: 201210
  2. DUOTRAV [Concomitant]
     Indication: PRODUCT USED FOR UNKNOWN INDICATION
     Dosage: UNK
     Route: 065

REACTIONS (11)
  - Muscular weakness [Recovering/Resolving]
  - Headache [Recovered/Resolved with Sequelae]
  - Palpitations [Recovered/Resolved]
  - Amnesia [Recovering/Resolving]
  - Nausea [Recovered/Resolved with Sequelae]
  - Dizziness [Recovered/Resolved with Sequelae]
  - Hypoaesthesia [Recovered/Resolved with Sequelae]
  - Arthralgia [Recovered/Resolved with Sequelae]
  - Yellow skin [Recovered/Resolved with Sequelae]
  - Pain in jaw [Recovered/Resolved]
  - Temperature intolerance [Recovered/Resolved]
